FAERS Safety Report 20035995 (Version 1)
Quarter: 2021Q4

REPORT INFORMATION
  Report Type: Spontaneous
  Country: US (occurrence: US)
  Receive Date: 20211105
  Receipt Date: 20211105
  Transmission Date: 20220303
  Serious: Yes (Hospitalization)
  Sender: FDA-Public Use
  Company Number: US-JNJFOC-20211060970

PATIENT

DRUGS (1)
  1. BENADRYL [Suspect]
     Active Substance: DIPHENHYDRAMINE HYDROCHLORIDE
     Indication: Product used for unknown indication
     Route: 065

REACTIONS (9)
  - Hallucinations, mixed [Unknown]
  - Schizophrenia [Unknown]
  - Muscle spasms [Unknown]
  - Discomfort [Unknown]
  - Conversion disorder [Unknown]
  - Memory impairment [Unknown]
  - Abnormal behaviour [Unknown]
  - Somnolence [Unknown]
  - Overdose [Unknown]
